FAERS Safety Report 23037475 (Version 1)
Quarter: 2023Q4

REPORT INFORMATION
  Report Type: Report from Study
  Country: US (occurrence: US)
  Receive Date: 20231006
  Receipt Date: 20231006
  Transmission Date: 20240109
  Serious: Yes (Other)
  Sender: FDA-Public Use
  Company Number: ENDG23-05099

PATIENT
  Sex: Female
  Weight: 57.596 kg

DRUGS (1)
  1. TREPROSTINIL [Suspect]
     Active Substance: TREPROSTINIL
     Indication: Pulmonary arterial hypertension
     Dosage: 0.028 MICROGRAM/KILOGRAM, INFUSION (CONTINUOUS FREQUENCY)
     Route: 041
     Dates: start: 202308

REACTIONS (4)
  - Oxygen saturation decreased [Unknown]
  - Nausea [Recovering/Resolving]
  - Dyspnoea [Unknown]
  - Hypotension [Unknown]

NARRATIVE: CASE EVENT DATE: 20230101
